FAERS Safety Report 17434890 (Version 1)
Quarter: 2020Q1

REPORT INFORMATION
  Report Type: Spontaneous
  Country: US (occurrence: US)
  Receive Date: 20200219
  Receipt Date: 20200219
  Transmission Date: 20200409
  Serious: No
  Sender: FDA-Public Use
  Company Number: US-ASTRAZENECA-2020SE20846

PATIENT
  Age: 263 Day
  Sex: Male
  Weight: 8.5 kg

DRUGS (3)
  1. SYNAGIS [Suspect]
     Active Substance: PALIVIZUMAB
     Indication: PREMATURE BABY
     Dosage: ON 20-NOV-2019 113 MG, 120 MG ON DAY 28 OF THE 30 DAY CYCLE, 125 MG ON DAY 28 OF THE 30 DAY CYCLE...
     Route: 030
     Dates: start: 20191120
  2. SYNAGIS [Suspect]
     Active Substance: PALIVIZUMAB
     Indication: CHRONIC RESPIRATORY DISEASE
     Dosage: ON 20-NOV-2019 113 MG, 120 MG ON DAY 28 OF THE 30 DAY CYCLE, 125 MG ON DAY 28 OF THE 30 DAY CYCLE...
     Route: 030
     Dates: start: 20191120
  3. HYDROCORTISONE. [Concomitant]
     Active Substance: HYDROCORTISONE
     Indication: DRY SKIN
     Route: 061
     Dates: start: 2020

REACTIONS (2)
  - Inappropriate schedule of product administration [Unknown]
  - Dry skin [Unknown]

NARRATIVE: CASE EVENT DATE: 20200116
